FAERS Safety Report 7081832-0 (Version None)
Quarter: 2010Q4

REPORT INFORMATION
  Report Type: 
  Country: None (occurrence: None)
  Receive Date: 20101103
  Receipt Date: 20101021
  Transmission Date: 20110411
  Serious: Yes (Other)
  Sender: FDA-Public Use
  Company Number: FR-ELI_LILLY_AND_COMPANY-FR201010004772

PATIENT
  Sex: Male

DRUGS (6)
  1. ALIMTA [Suspect]
     Indication: LUNG NEOPLASM MALIGNANT
     Dosage: 1000 MG, PER INFUSION
     Route: 042
     Dates: start: 20100715
  2. CISPLATIN [Concomitant]
     Indication: LUNG NEOPLASM MALIGNANT
     Dosage: 120 MG, PER INFUSION
     Route: 042
     Dates: start: 20100715
  3. EMEND [Concomitant]
     Dosage: 125 MG, UNKNOWN
     Route: 042
     Dates: start: 20100715
  4. SPECIAFOLDINE [Concomitant]
     Indication: VITAMIN SUPPLEMENTATION
     Dosage: UNK, DAILY (1/D)
     Route: 048
     Dates: start: 20100701
  5. VITAMIN B-12 [Concomitant]
     Indication: VITAMIN SUPPLEMENTATION
     Dosage: UNK, DAILY (1/D)
     Route: 048
     Dates: start: 20100701
  6. ISOPTIN [Concomitant]
     Indication: HYPERTENSION
     Dosage: UNK, DAILY (1/D)
     Route: 048

REACTIONS (2)
  - AREFLEXIA [None]
  - PHOTOSENSITIVITY REACTION [None]
